FAERS Safety Report 20177377 (Version 3)
Quarter: 2022Q3

REPORT INFORMATION
  Report Type: Report from Study
  Country: US (occurrence: US)
  Receive Date: 20211213
  Receipt Date: 20220825
  Transmission Date: 20221026
  Serious: No
  Sender: FDA-Public Use
  Company Number: US-NOVARTISTESTPH-NVSC2021US284409

PATIENT
  Sex: Female
  Weight: 72.562 kg

DRUGS (5)
  1. TREPROSTINIL [Suspect]
     Active Substance: TREPROSTINIL
     Indication: Pulmonary arterial hypertension
     Dosage: UNK, CONT (DOSE: 110 NG/KG/MIN)
     Route: 058
     Dates: start: 20211022
  2. TREPROSTINIL [Suspect]
     Active Substance: TREPROSTINIL
     Dosage: UNK, CONT (DOSE: 110 NG/KG/MIN)
     Route: 058
     Dates: start: 20211022
  3. TREPROSTINIL [Suspect]
     Active Substance: TREPROSTINIL
     Dosage: DOSE: 110 NG/KG/MIN
     Route: 058
  4. ADEMPAS [Concomitant]
     Active Substance: RIOCIGUAT
     Indication: Product used for unknown indication
     Dosage: UNK
     Route: 065
  5. AMBRISENTAN [Concomitant]
     Active Substance: AMBRISENTAN
     Indication: Product used for unknown indication
     Dosage: UNK
     Route: 065

REACTIONS (4)
  - Administration site injury [Unknown]
  - Injection site injury [Unknown]
  - Headache [Unknown]
  - Injection site haemorrhage [Unknown]
